FAERS Safety Report 23963872 (Version 1)
Quarter: 2024Q2

REPORT INFORMATION
  Report Type: Spontaneous
  Country: US (occurrence: US)
  Receive Date: 20240611
  Receipt Date: 20240611
  Transmission Date: 20240716
  Serious: No
  Sender: FDA-Public Use
  Company Number: US-APELLIS-2024-APL-0000091

PATIENT

DRUGS (1)
  1. SYFOVRE [Suspect]
     Active Substance: PEGCETACOPLAN
     Indication: Dry age-related macular degeneration
     Dosage: INJECT 15 MG (0.1 ML) INTRAVITREALLY INTO LEFT EYE, ONCE EVERY 6 WEEKS
     Route: 031

REACTIONS (1)
  - Intentional product misuse [Unknown]
